FAERS Safety Report 24748321 (Version 1)
Quarter: 2024Q4

REPORT INFORMATION
  Report Type: Spontaneous
  Country: GB (occurrence: GB)
  Receive Date: 20241218
  Receipt Date: 20241218
  Transmission Date: 20250115
  Serious: Yes (Life-Threatening, Other)
  Sender: ACCORD
  Company Number: None

PATIENT
  Sex: Female
  Weight: 132 kg

DRUGS (4)
  1. BUSPIRONE [Suspect]
     Active Substance: BUSPIRONE HYDROCHLORIDE
     Indication: Anxiety
     Dosage: 10MG TDS
     Dates: start: 202405
  2. GABAPENTIN [Suspect]
     Active Substance: GABAPENTIN
     Indication: Product used for unknown indication
     Dosage: 600MG TDS
     Dates: start: 20220201
  3. IMIPRAMINE [Suspect]
     Active Substance: IMIPRAMINE
     Indication: Depressed mood
     Dosage: 75MG BD
  4. MORPHINE SULFATE [Suspect]
     Active Substance: MORPHINE SULFATE
     Indication: Adverse drug reaction
     Dosage: 30MG BD
     Dates: start: 20220217

REACTIONS (1)
  - Sleep apnoea syndrome [Not Recovered/Not Resolved]
